FAERS Safety Report 15425838 (Version 3)
Quarter: 2018Q3

REPORT INFORMATION
  Report Type: Spontaneous
  Country: US (occurrence: US)
  Receive Date: 20180925
  Receipt Date: 20180928
  Transmission Date: 20181010
  Serious: Yes (Other)
  Sender: FDA-Public Use
  Company Number: US-PFIZER INC-2018382943

PATIENT
  Sex: Male

DRUGS (1)
  1. COLESTID [Suspect]
     Active Substance: COLESTIPOL HYDROCHLORIDE
     Dosage: 1 G, DAILY
     Route: 048

REACTIONS (3)
  - Incorrect dose administered [Unknown]
  - Senile dementia [Unknown]
  - Wrong technique in product usage process [Unknown]
